FAERS Safety Report 9163133 (Version 2)
Quarter: 2013Q2

REPORT INFORMATION
  Report Type: Report from Study
  Country: FR (occurrence: FR)
  Receive Date: 20130314
  Receipt Date: 20130430
  Transmission Date: 20140414
  Serious: Yes (Hospitalization)
  Sender: FDA-Public Use
  Company Number: FR-ROCHE-1010146

PATIENT
  Age: 76 Year
  Sex: Female
  Weight: 54 kg

DRUGS (6)
  1. BEVACIZUMAB [Suspect]
     Indication: OVARIAN CANCER
     Dosage: LAST DOSE PRIOR TO SAE ON 26/OCT/2011
     Route: 042
     Dates: start: 20110713, end: 20111026
  2. PACLITAXEL [Suspect]
     Indication: OVARIAN CANCER
     Dosage: LAST DOSE PRIOR TO SAE ON 26/OCT/2011
     Route: 042
     Dates: start: 20110713, end: 20111026
  3. CARBOPLATIN [Suspect]
     Indication: OVARIAN CANCER
     Dosage: LAST DOSE PRIOR TO SAE ON 26/OCT/2011
     Route: 042
     Dates: start: 20110713, end: 20111026
  4. INEXIUM [Concomitant]
     Route: 065
     Dates: start: 20110511, end: 20120214
  5. HYPERIUM [Concomitant]
     Route: 065
     Dates: start: 20110510, end: 20120214
  6. TEMESTA [Concomitant]
     Route: 065
     Dates: start: 20110511, end: 20111213

REACTIONS (2)
  - Intestinal obstruction [Recovered/Resolved]
  - Female genital tract fistula [Recovered/Resolved]
